FAERS Safety Report 23196235 (Version 1)
Quarter: 2023Q4

REPORT INFORMATION
  Report Type: Spontaneous
  Country: US (occurrence: None)
  Receive Date: 20231116
  Receipt Date: 20231116
  Transmission Date: 20240109
  Serious: No
  Sender: FDA-Public Use
  Company Number: None

PATIENT
  Sex: Female
  Weight: 54.43 kg

DRUGS (2)
  1. ESTRADIOL [Suspect]
     Active Substance: ESTRADIOL
     Indication: Menopause
     Dosage: 0.1 MG /24HOUR PATCH TWICE A WEEK TRANSDERMAL
     Route: 062
     Dates: start: 20230906, end: 20231107
  2. ESTRADIOL [Suspect]
     Active Substance: ESTRADIOL
     Indication: Menopause
     Dosage: 2MG TAB BID ORALLY?
     Route: 048
     Dates: start: 20230809, end: 20230906

REACTIONS (1)
  - Drug ineffective [None]
